FAERS Safety Report 21412587 (Version 3)
Quarter: 2023Q4

REPORT INFORMATION
  Report Type: Spontaneous
  Country: JP (occurrence: JP)
  Receive Date: 20221005
  Receipt Date: 20231006
  Transmission Date: 20240110
  Serious: Yes (Death, Hospitalization)
  Sender: FDA-Public Use
  Company Number: JP-BAYER-2022A135769

PATIENT
  Age: 60 Year
  Sex: Female

DRUGS (2)
  1. IOPROMIDE [Suspect]
     Active Substance: IOPROMIDE
     Indication: Pulmonary infarction
     Dosage: UNK UNK, ONCE
     Dates: start: 20220929, end: 20220929
  2. IOPROMIDE [Suspect]
     Active Substance: IOPROMIDE
     Indication: Computerised tomogram thorax

REACTIONS (4)
  - Pulmonary embolism [Fatal]
  - Feeling hot [Fatal]
  - Loss of consciousness [Fatal]
  - Seizure [Fatal]

NARRATIVE: CASE EVENT DATE: 20220929
